FAERS Safety Report 15458949 (Version 4)
Quarter: 2019Q2

REPORT INFORMATION
  Report Type: Report from Study
  Country: US (occurrence: US)
  Receive Date: 20181003
  Receipt Date: 20190404
  Transmission Date: 20190711
  Serious: Yes (Other)
  Sender: FDA-Public Use
  Company Number: US-ALEXION PHARMACEUTICALS INC.-A201812638

PATIENT
  Sex: Female

DRUGS (2)
  1. SOLIRIS [Suspect]
     Active Substance: ECULIZUMAB
     Indication: ATYPICAL HAEMOLYTIC URAEMIC SYNDROME
     Dosage: UNK
     Route: 065
  2. LABETALOL [Concomitant]
     Active Substance: LABETALOL\LABETALOL HYDROCHLORIDE
     Indication: HYPERTENSION
     Dosage: UNK, PRN
     Route: 065

REACTIONS (11)
  - Swelling [Not Recovered/Not Resolved]
  - Condition aggravated [Unknown]
  - Blood creatinine increased [Unknown]
  - Headache [Unknown]
  - Hypersensitivity [Unknown]
  - Cerebrovascular accident [Unknown]
  - Swelling face [Unknown]
  - Madarosis [Unknown]
  - Malaise [Unknown]
  - Hypertension [Not Recovered/Not Resolved]
  - Muscle spasms [Unknown]
